FAERS Safety Report 16812890 (Version 1)
Quarter: 2019Q3

REPORT INFORMATION
  Report Type: Other
  Country: US (occurrence: US)
  Receive Date: 20190916
  Receipt Date: 20190916
  Transmission Date: 20191005
  Serious: No
  Sender: FDA-Public Use
  Company Number: US-LEADIANT BIOSCIENCES INC-2018STPI000467

PATIENT
  Sex: Male

DRUGS (1)
  1. MATULANE [Suspect]
     Active Substance: PROCARBAZINE HYDROCHLORIDE
     Indication: LYMPHOMA
     Dosage: 200 MG, QD (DAYS 1-7 EVERY 14-DAY CYCLE)
     Route: 048
     Dates: start: 20180530

REACTIONS (1)
  - Renal disorder [Not Recovered/Not Resolved]
